FAERS Safety Report 23718792 (Version 1)
Quarter: 2024Q2

REPORT INFORMATION
  Report Type: Report from Study
  Country: US (occurrence: None)
  Receive Date: 20240408
  Receipt Date: 20240408
  Transmission Date: 20240716
  Serious: Yes (Death)
  Sender: FDA-Public Use
  Company Number: 2024A081039

PATIENT
  Sex: Male

DRUGS (12)
  1. TAGRISSO [Suspect]
     Active Substance: OSIMERTINIB
     Indication: Non-small cell lung cancer stage IV
     Route: 048
     Dates: start: 20230413
  2. ATORVASTATIN [Concomitant]
     Active Substance: ATORVASTATIN
  3. COLACE [Concomitant]
     Active Substance: DOCUSATE SODIUM
  4. ELIQUIS [Concomitant]
     Active Substance: APIXABAN
  5. EPLERENONE [Concomitant]
     Active Substance: EPLERENONE
  6. LISINOPRIL [Concomitant]
     Active Substance: LISINOPRIL
  7. METOPROLOL [Concomitant]
     Active Substance: METOPROLOL
  8. MIRALAX [Concomitant]
     Active Substance: POLYETHYLENE GLYCOL 3350
  9. POTASSIUM [Concomitant]
     Active Substance: POTASSIUM
  10. TAMSULOSIN [Concomitant]
     Active Substance: TAMSULOSIN
  11. TORSEMIDE [Concomitant]
     Active Substance: TORSEMIDE
  12. TRIAMCINOLONE [Concomitant]
     Active Substance: TRIAMCINOLONE

REACTIONS (1)
  - Death [Fatal]
